FAERS Safety Report 16213674 (Version 1)
Quarter: 2019Q2

REPORT INFORMATION
  Report Type: Other
  Country: IT (occurrence: IT)
  Receive Date: 20190418
  Receipt Date: 20190418
  Transmission Date: 20190711
  Serious: Yes (Other)
  Sender: FDA-Public Use
  Company Number: IT-RARE DISEASE THERAPEUTICS, INC.-2066013

PATIENT
  Sex: Female

DRUGS (5)
  1. PURIXAN [Suspect]
     Active Substance: MERCAPTOPURINE
     Indication: ACUTE LYMPHOCYTIC LEUKAEMIA
  2. DASATINIB. [Suspect]
     Active Substance: DASATINIB
     Route: 065
  3. DASATINIB. [Suspect]
     Active Substance: DASATINIB
     Route: 065
  4. CYTARABINE. [Suspect]
     Active Substance: CYTARABINE
  5. CYCLOPHOSPHAMIDE. [Suspect]
     Active Substance: CYCLOPHOSPHAMIDE
     Route: 065

REACTIONS (2)
  - Gastrointestinal haemorrhage [Recovered/Resolved]
  - Klebsiella sepsis [Recovering/Resolving]
